FAERS Safety Report 16305141 (Version 1)
Quarter: 2019Q2

REPORT INFORMATION
  Report Type: Spontaneous
  Country: US (occurrence: US)
  Receive Date: 20190510
  Receipt Date: 20190510
  Transmission Date: 20190711
  Serious: Yes (Other)
  Sender: FDA-Public Use
  Company Number: None

PATIENT
  Age: 30 Year
  Sex: Male
  Weight: 85.5 kg

DRUGS (3)
  1. AIMOVIG [Suspect]
     Active Substance: ERENUMAB-AOOE
     Indication: MIGRAINE
     Dosage: ?          QUANTITY:1 INJECTION(S);OTHER FREQUENCY:ONCE MONTHLY;?
     Route: 058
     Dates: start: 20181105, end: 20190401
  2. IBUPROFEN. [Concomitant]
     Active Substance: IBUPROFEN
  3. DRAMAMINE [Concomitant]
     Active Substance: DIMENHYDRINATE

REACTIONS (6)
  - Haematemesis [None]
  - Migraine [None]
  - Drug ineffective [None]
  - Vomiting [None]
  - Pain [None]
  - Ulcer [None]

NARRATIVE: CASE EVENT DATE: 20190303
